FAERS Safety Report 12193313 (Version 2)
Quarter: 2016Q2

REPORT INFORMATION
  Report Type: Spontaneous
  Country: US (occurrence: US)
  Receive Date: 20160319
  Receipt Date: 20160421
  Transmission Date: 20160815
  Serious: No
  Sender: FDA-Public Use
  Company Number: US-B.I. PHARMACEUTICALS,INC./RIDGEFIELD-2016-BI-08332BP

PATIENT
  Age: 68 Year
  Sex: Female
  Weight: 80.29 kg

DRUGS (1)
  1. SPIRIVA [Suspect]
     Active Substance: TIOTROPIUM BROMIDE MONOHYDRATE
     Indication: CHRONIC OBSTRUCTIVE PULMONARY DISEASE
     Dosage: 2.5 MCG
     Route: 055
     Dates: start: 20160118

REACTIONS (3)
  - Cough [Unknown]
  - Product quality issue [Unknown]
  - Drug ineffective [Unknown]

NARRATIVE: CASE EVENT DATE: 20160118
